FAERS Safety Report 6062777-1 (Version None)
Quarter: 2009Q1

REPORT INFORMATION
  Report Type: 
  Country: None (occurrence: None)
  Receive Date: 20090203
  Receipt Date: 20090121
  Transmission Date: 20090719
  Serious: Yes (Death)
  Sender: FDA-Public Use
  Company Number: US-JNJFOC-20090106929

PATIENT
  Sex: Male
  Weight: 82.1 kg

DRUGS (6)
  1. FENTANYL-75 [Suspect]
     Indication: DRUG USE FOR UNKNOWN INDICATION
     Route: 065
  2. COCAINE [Suspect]
     Indication: DRUG USE FOR UNKNOWN INDICATION
     Route: 065
  3. CREATININE [Concomitant]
  4. DEXTROSE 5% [Concomitant]
  5. POTASSIUM CHLORIDE [Concomitant]
  6. SODIUM [Concomitant]

REACTIONS (1)
  - DRUG TOXICITY [None]
